FAERS Safety Report 17115600 (Version 5)
Quarter: 2022Q2

REPORT INFORMATION
  Report Type: Spontaneous
  Country: US (occurrence: US)
  Receive Date: 20191205
  Receipt Date: 20220525
  Transmission Date: 20220720
  Serious: Yes (Hospitalization, Other)
  Sender: FDA-Public Use
  Company Number: US-PFIZER INC-2015398739

PATIENT
  Age: 69 Year
  Sex: Female
  Weight: 81 kg

DRUGS (3)
  1. TOVIAZ [Suspect]
     Active Substance: FESOTERODINE FUMARATE
     Indication: Hypertonic bladder
     Dosage: 8 MG, DAILY (1 TABLET SUSTAINED-RELEASE 24 HR ORAL EVERY DAY)
     Route: 048
  2. TOVIAZ [Suspect]
     Active Substance: FESOTERODINE FUMARATE
     Dosage: 8 DF, 1X/DAY (8 ONCE A DAY)
  3. TOVIAZ [Suspect]
     Active Substance: FESOTERODINE FUMARATE
     Dosage: 8 MG, 1X/DAY
     Route: 048
     Dates: start: 201601

REACTIONS (2)
  - Colon cancer [Recovered/Resolved]
  - Pollakiuria [Recovered/Resolved]

NARRATIVE: CASE EVENT DATE: 20190324
